FAERS Safety Report 6592673-2 (Version None)
Quarter: 2010Q1

REPORT INFORMATION
  Report Type: 
  Country: None (occurrence: None)
  Receive Date: 20100222
  Receipt Date: 20100211
  Transmission Date: 20100710
  Serious: Yes (Hospitalization)
  Sender: FDA-Public Use
  Company Number: US-BIOGENIDEC-2009BI030711

PATIENT
  Age: 57 Year
  Sex: Female

DRUGS (2)
  1. AVONEX [Suspect]
     Indication: MULTIPLE SCLEROSIS
     Route: 030
     Dates: start: 20050201
  2. CLARITIN [Concomitant]
     Indication: SEASONAL ALLERGY

REACTIONS (14)
  - ARTHRITIS [None]
  - CATARACT [None]
  - CLOSTRIDIAL INFECTION [None]
  - DEVICE FAILURE [None]
  - GASTRIC ULCER HAEMORRHAGE [None]
  - HIP FRACTURE [None]
  - JOINT EFFUSION [None]
  - JOINT INJURY [None]
  - JOINT SWELLING [None]
  - MOBILITY DECREASED [None]
  - MUSCLE ATROPHY [None]
  - MUSCULOSKELETAL PAIN [None]
  - OSTEONECROSIS [None]
  - ROTATOR CUFF SYNDROME [None]
